FAERS Safety Report 20016069 (Version 1)
Quarter: 2021Q4

REPORT INFORMATION
  Report Type: Spontaneous
  Country: US (occurrence: None)
  Receive Date: 20211102
  Receipt Date: 20211102
  Transmission Date: 20220303
  Serious: No
  Sender: FDA-Public Use
  Company Number: None

PATIENT
  Age: 60 Year
  Sex: Female

DRUGS (1)
  1. TALTZ [Suspect]
     Active Substance: IXEKIZUMAB
     Indication: Psoriatic arthropathy
     Dosage: FREQUENCY : MONTHLY;?
     Route: 058

REACTIONS (5)
  - Herpes zoster [None]
  - COVID-19 [None]
  - Therapy interrupted [None]
  - Device malfunction [None]
  - Needle issue [None]

NARRATIVE: CASE EVENT DATE: 20211029
